FAERS Safety Report 7631409-0 (Version None)
Quarter: 2011Q3

REPORT INFORMATION
  Report Type: 
  Country: None (occurrence: None)
  Receive Date: 20110725
  Receipt Date: 20110714
  Transmission Date: 20111222
  Serious: Yes (Death, Other)
  Sender: FDA-Public Use
  Company Number: GB-GENZYME-CLOF-1001534

PATIENT
  Sex: Male
  Weight: 24.9 kg

DRUGS (26)
  1. IDARUBICIN HCL [Suspect]
     Indication: ACUTE MYELOID LEUKAEMIA
     Dosage: 7.5 MG, QD DAY 0
     Route: 065
     Dates: start: 20110206
  2. DAUNOXOME [Suspect]
     Dosage: 60 MG, QD DAY 3
     Route: 065
     Dates: start: 20110318, end: 20110318
  3. ACETAMINOPHEN [Concomitant]
     Indication: PYREXIA
  4. OXYGEN [Concomitant]
     Indication: OXYGEN SATURATION DECREASED
     Dosage: UNK
     Route: 055
     Dates: start: 20110328
  5. ACETAMINOPHEN [Concomitant]
     Indication: ANALGESIC THERAPY
     Dosage: 375 MG, QID
     Route: 048
     Dates: start: 20110316
  6. GENTAMICIN [Concomitant]
     Indication: FEBRILE NEUTROPENIA
     Dosage: 125 MG, QD
     Route: 042
     Dates: start: 20110325, end: 20110327
  7. DAUNOXOME [Suspect]
     Indication: ACUTE MYELOID LEUKAEMIA
     Dosage: 60 MG, QD DAY 1
     Route: 065
     Dates: start: 20110316, end: 20110316
  8. ALLOPURINOL [Concomitant]
     Indication: PROPHYLAXIS
     Dosage: 95 MG, TID
     Route: 048
     Dates: start: 20110315
  9. PLATELETS [Concomitant]
     Indication: THROMBOCYTOPENIA
     Dosage: 1 ADULT U, QD
     Route: 042
     Dates: start: 20110328, end: 20110328
  10. IDARUBICIN HCL [Suspect]
     Dosage: 7.5 MG, QD DAY 4
     Route: 065
     Dates: end: 20110211
  11. VANCOMYCIN [Concomitant]
     Indication: FEBRILE NEUTROPENIA
     Dosage: 375 MG, TID
     Route: 042
     Dates: start: 20110328, end: 20110329
  12. EVOLTRA [Suspect]
     Indication: ACUTE MYELOID LEUKAEMIA
     Dosage: 40 MG, QD X 5 DAYS
     Route: 042
     Dates: start: 20110316, end: 20110320
  13. IDARUBICIN HCL [Suspect]
     Dosage: 7.5 MG, QD DAY 3
     Route: 065
  14. ONDANSETRON [Concomitant]
     Indication: ANTIEMETIC SUPPORTIVE CARE
     Dosage: 3.7 MG, TID
     Route: 042
     Dates: start: 20110316
  15. METOCLOPRAMIDE [Concomitant]
     Indication: ANTIEMETIC SUPPORTIVE CARE
     Dosage: 4 MG, TID
     Route: 042
     Dates: start: 20110316
  16. SEPTRA [Concomitant]
     Indication: ANTIFUNGAL PROPHYLAXIS
     Dosage: 360 MG, 2X/W
     Route: 048
     Dates: start: 20110314
  17. BLOOD TRANSFUSION, AUXILIARY PRODUCTS [Concomitant]
     Indication: ANAEMIA
     Dosage: 1 ADULT U
     Route: 042
     Dates: start: 20110325
  18. BLOOD TRANSFUSION, AUXILIARY PRODUCTS [Concomitant]
     Dosage: 1 ADULT U, QD
     Route: 042
     Dates: start: 20110328, end: 20110328
  19. ACETAMINOPHEN [Concomitant]
     Dosage: 375 MG, QID
     Route: 042
     Dates: start: 20110316
  20. CYTARABINE [Suspect]
     Indication: ACUTE MYELOID LEUKAEMIA
     Dosage: 100 MG, QD DAY 0
     Route: 065
     Dates: start: 20110206, end: 20110206
  21. CYTARABINE [Suspect]
     Dosage: 100 MG, QD DAY 1-5
     Route: 065
     Dates: start: 20110207, end: 20110311
  22. PIPERACILLIN AND TAZOBACTAM [Concomitant]
     Indication: FEBRILE NEUTROPENIA
     Dosage: 2400 MG, TID
     Route: 042
     Dates: start: 20110325
  23. FLUDARA [Suspect]
     Indication: ACUTE MYELOID LEUKAEMIA
     Dosage: 28 MG, QD DAY 1-5
     Route: 065
     Dates: start: 20110206, end: 20110211
  24. DAUNOXOME [Suspect]
     Dosage: 60 MG, QD DAY 5
     Route: 065
     Dates: start: 20110320, end: 20110320
  25. AMBISOME [Concomitant]
     Indication: ANTIFUNGAL TREATMENT
     Dosage: 25 MG, 3X/W
     Route: 042
     Dates: start: 20110321
  26. ACETAMINOPHEN [Concomitant]

REACTIONS (2)
  - DEATH [None]
  - RESPIRATORY TRACT INFECTION FUNGAL [None]
